FAERS Safety Report 8282809-X (Version None)
Quarter: 2012Q2

REPORT INFORMATION
  Report Type: 
  Country: None (occurrence: None)
  Receive Date: 20120410
  Receipt Date: 20120329
  Transmission Date: 20120825
  Serious: Yes (Other)
  Sender: FDA-Public Use
  Company Number: DSA_56026_2012

PATIENT
  Sex: Female

DRUGS (1)
  1. BUPROPION HYDROCHLORIDE [Suspect]
     Indication: PRODUCT USED FOR UNKNOWN INDICATION
     Dosage: 150 MG DAILY ORAL
     Route: 048
     Dates: start: 20120301, end: 20120317

REACTIONS (5)
  - HAEMORRHAGE [None]
  - NAUSEA [None]
  - HEADACHE [None]
  - HYPERTENSION [None]
  - VOMITING [None]
